FAERS Safety Report 26210948 (Version 1)
Quarter: 2025Q4

REPORT INFORMATION
  Report Type: Spontaneous
  Country: US (occurrence: US)
  Receive Date: 20251230
  Receipt Date: 20251230
  Transmission Date: 20260117
  Serious: No
  Sender: SUNOVION
  Company Number: US-SUMITOMO PHARMA SWITZERLAND GMBH-2025SPA017215

PATIENT
  Age: 75 Year
  Sex: Male

DRUGS (2)
  1. ORGOVYX [Suspect]
     Active Substance: RELUGOLIX
     Indication: Prostate cancer
     Dosage: 360 MG, SINGLE
     Route: 048
  2. ORGOVYX [Suspect]
     Active Substance: RELUGOLIX
     Dosage: 120 MG, QD
     Route: 048

REACTIONS (8)
  - Asthenia [Unknown]
  - Hot flush [Unknown]
  - Renal disorder [Unknown]
  - Laziness [Unknown]
  - Sleep disorder [Unknown]
  - Gastrointestinal disorder [Unknown]
  - Glycosylated haemoglobin increased [Unknown]
  - Lethargy [Unknown]
